FAERS Safety Report 4840349-1 (Version None)
Quarter: 2005Q4

REPORT INFORMATION
  Report Type: 
  Country: None (occurrence: None)
  Receive Date: 20051025
  Receipt Date: 20050128
  Transmission Date: 20060501
  Serious: Yes (Other)
  Sender: FDA-Public Use
  Company Number: 2005-00244

PATIENT
  Age: 28 Year
  Sex: Female

DRUGS (1)
  1. TUBERSOL [Suspect]
     Indication: IMMUNISATION
     Dates: start: 20050126

REACTIONS (7)
  - HEADACHE [None]
  - INJECTION SITE INDURATION [None]
  - INJECTION SITE REACTION [None]
  - INJECTION SITE SWELLING [None]
  - INJECTION SITE VESICLES [None]
  - PRURITUS [None]
  - RASH [None]
